FAERS Safety Report 7403434-6 (Version None)
Quarter: 2011Q2

REPORT INFORMATION
  Report Type: 
  Country: None (occurrence: None)
  Receive Date: 20110408
  Receipt Date: 20110401
  Transmission Date: 20111010
  Serious: Yes (Hospitalization)
  Sender: FDA-Public Use
  Company Number: A0921091A

PATIENT
  Sex: Female

DRUGS (6)
  1. PROZAC [Concomitant]
  2. DIAZEPAM [Concomitant]
  3. LAMICTAL [Suspect]
     Indication: BIPOLAR DISORDER
     Dosage: 50MG TWICE PER DAY
     Route: 048
  4. VISTARIL [Concomitant]
  5. BARBITURATE [Concomitant]
  6. SLEEP AID [Concomitant]

REACTIONS (4)
  - MIGRAINE [None]
  - HEMIPARESIS [None]
  - INCORRECT DRUG DOSAGE FORM ADMINISTERED [None]
  - DRUG SCREEN FALSE POSITIVE [None]
